FAERS Safety Report 18929964 (Version 1)
Quarter: 2021Q1

REPORT INFORMATION
  Report Type: Spontaneous
  Country: US (occurrence: US)
  Receive Date: 20210223
  Receipt Date: 20210223
  Transmission Date: 20210420
  Serious: No
  Sender: FDA-Public Use
  Company Number: US-SA-2021SA049492

PATIENT
  Age: 76 Year
  Sex: Female

DRUGS (1)
  1. TOUJEO [Suspect]
     Active Substance: INSULIN GLARGINE
     Dosage: DRUG STRUCTURE DOSAGE : 15?30 UNITS DEPENDS ON SUGAR LEVELS DRUG INTERVAL DOSAGE : NOT INFORMED DRUG

REACTIONS (2)
  - Blood glucose increased [Unknown]
  - Product storage error [Unknown]
